FAERS Safety Report 22613500 (Version 3)
Quarter: 2024Q2

REPORT INFORMATION
  Report Type: Other
  Country: CN (occurrence: CN)
  Receive Date: 20230619
  Receipt Date: 20240515
  Transmission Date: 20240716
  Serious: Yes (Life-Threatening, Hospitalization)
  Sender: FDA-Public Use
  Company Number: CN-Jiangsu Hengrui Medicine Co., Ltd.-2142811

PATIENT
  Age: 62 Year
  Sex: Male
  Weight: 61 kg

DRUGS (6)
  1. OXALIPLATIN [Suspect]
     Active Substance: OXALIPLATIN
     Indication: Gastric cancer
     Route: 041
     Dates: start: 20230423, end: 20230604
  2. SERPLULIMAB [Suspect]
     Active Substance: SERPLULIMAB
     Route: 041
     Dates: start: 20230423, end: 20230606
  3. ONDANSETRON HYDROCHLORIDE [Concomitant]
     Active Substance: ONDANSETRON HYDROCHLORIDE
     Route: 041
     Dates: start: 20230606, end: 20230606
  4. METOCLOPRAMIDE DIHYDROCHLORIDE [Concomitant]
     Active Substance: METOCLOPRAMIDE DIHYDROCHLORIDE
     Route: 041
     Dates: start: 20230606, end: 20230606
  5. INSULIN NOS [Concomitant]
     Active Substance: INSULIN NOS
     Route: 041
     Dates: start: 20230606, end: 20230606
  6. GIMERACIL\OTERACIL\TEGAFUR [Suspect]
     Active Substance: GIMERACIL\OTERACIL POTASSIUM\TEGAFUR
     Route: 041
     Dates: start: 20230423, end: 20230606

REACTIONS (2)
  - Shock [Recovered/Resolved]
  - Acute hepatic failure [Unknown]

NARRATIVE: CASE EVENT DATE: 20230608
